FAERS Safety Report 19384422 (Version 1)
Quarter: 2021Q2

REPORT INFORMATION
  Report Type: Spontaneous
  Country: DE (occurrence: DE)
  Receive Date: 20210607
  Receipt Date: 20210607
  Transmission Date: 20210717
  Serious: Yes (Other)
  Sender: FDA-Public Use
  Company Number: DE-TAKEDA-2021TUS033899

PATIENT
  Age: 14 Year
  Sex: Male

DRUGS (1)
  1. ELVANSE [Suspect]
     Active Substance: LISDEXAMFETAMINE DIMESYLATE
     Indication: PRODUCT USED FOR UNKNOWN INDICATION
     Dosage: 30 MILLIGRAM, QD
     Route: 065
     Dates: start: 20210526

REACTIONS (7)
  - Syncope [Unknown]
  - Tremor [Unknown]
  - Headache [Unknown]
  - Illusion [Unknown]
  - Hypertension [Unknown]
  - Hyperventilation [Unknown]
  - Heart rate increased [Unknown]

NARRATIVE: CASE EVENT DATE: 20210526
